FAERS Safety Report 4863689-9 (Version None)
Quarter: 2005Q4

REPORT INFORMATION
  Report Type: 
  Country: None (occurrence: None)
  Receive Date: 20051222
  Receipt Date: 20050624
  Transmission Date: 20060501
  Serious: No
  Sender: FDA-Public Use
  Company Number: US-GLAXOSMITHKLINE-A0564102A

PATIENT
  Sex: Male

DRUGS (3)
  1. FLONASE [Suspect]
     Dosage: 2SPR TWICE PER DAY
     Route: 045
  2. DIOVAN [Concomitant]
  3. ALLEGRA [Concomitant]

REACTIONS (5)
  - BLOODY DISCHARGE [None]
  - DRY THROAT [None]
  - DYSPHAGIA [None]
  - HEADACHE [None]
  - THROAT LESION [None]
